FAERS Safety Report 6447183-X (Version None)
Quarter: 2009Q4

REPORT INFORMATION
  Report Type: 
  Country: None (occurrence: None)
  Receive Date: 20091119
  Receipt Date: 20091113
  Transmission Date: 20100525
  Serious: Yes (Other)
  Sender: FDA-Public Use
  Company Number: GR-PFIZER INC-2009263680

PATIENT
  Age: 60 Year
  Sex: Female
  Weight: 64 kg

DRUGS (3)
  1. MEDROL [Suspect]
     Dosage: UNK
     Dates: start: 20000920, end: 20000930
  2. CELESTONE [Suspect]
     Dates: start: 20070828, end: 20070906
  3. XYLOCAINE [Concomitant]

REACTIONS (4)
  - ANAPHYLACTIC REACTION [None]
  - DIARRHOEA [None]
  - DYSPNOEA [None]
  - PRESYNCOPE [None]
